FAERS Safety Report 8528858-5 (Version None)
Quarter: 2012Q3

REPORT INFORMATION
  Report Type: 
  Country: None (occurrence: None)
  Receive Date: 20120723
  Receipt Date: 20120717
  Transmission Date: 20120928
  Serious: No
  Sender: FDA-Public Use
  Company Number: US-PFIZER INC-2012172830

PATIENT
  Sex: Male
  Weight: 58.9 kg

DRUGS (5)
  1. PROPRANOLOL [Concomitant]
     Indication: HYPERTENSION
     Dosage: 120 MG, 2X/DAY
  2. CYMBALTA [Concomitant]
     Indication: DEPRESSION
     Dosage: 60 MG, 2X/DAY
  3. CYMBALTA [Concomitant]
     Indication: BACK PAIN
  4. LYRICA [Suspect]
     Dosage: UNK
     Route: 048
  5. LYRICA [Suspect]
     Indication: BACK PAIN
     Dosage: 150 MG, 3X/DAY
     Route: 048
     Dates: start: 20120104

REACTIONS (2)
  - BLOOD CREATINE PHOSPHOKINASE INCREASED [None]
  - DYSPHEMIA [None]
